FAERS Safety Report 19477514 (Version 1)
Quarter: 2021Q2

REPORT INFORMATION
  Report Type: Report from Study
  Country: US (occurrence: US)
  Receive Date: 20210630
  Receipt Date: 20210630
  Transmission Date: 20210717
  Serious: Yes (Other)
  Sender: FDA-Public Use
  Company Number: US-SA-2021SA214929

PATIENT
  Age: 61 Year
  Sex: Male

DRUGS (1)
  1. DUPILUMAB [Suspect]
     Active Substance: DUPILUMAB
     Indication: ASTHMA
     Dosage: 300 MG, QOW
     Route: 058
     Dates: start: 20210527, end: 20210628

REACTIONS (4)
  - Conjunctival haemorrhage [Unknown]
  - Eye irritation [Unknown]
  - Inflammation [Unknown]
  - Product use issue [Unknown]

NARRATIVE: CASE EVENT DATE: 2021
